FAERS Safety Report 16975924 (Version 1)
Quarter: 2019Q4

REPORT INFORMATION
  Report Type: Spontaneous
  Country: US (occurrence: US)
  Receive Date: 20190913
  Receipt Date: 20190913
  Transmission Date: 20200122
  Serious: No
  Sender: FDA-Public Use
  Company Number: None

PATIENT
  Age: 62 Year
  Sex: Female

DRUGS (3)
  1. NIRAVAM [Concomitant]
     Active Substance: ALPRAZOLAM
  2. ATORVASTATIN [Suspect]
     Active Substance: ATORVASTATIN
  3. VOTRIENT [Suspect]
     Active Substance: PAZOPANIB HYDROCHLORIDE
     Indication: BLADDER NEOPLASM
     Route: 048
     Dates: start: 20190717, end: 20190819

REACTIONS (1)
  - Seizure [None]

NARRATIVE: CASE EVENT DATE: 201909
